FAERS Safety Report 20547784 (Version 1)
Quarter: 2022Q1

REPORT INFORMATION
  Report Type: Spontaneous
  Country: US (occurrence: US)
  Receive Date: 20220303
  Receipt Date: 20220303
  Transmission Date: 20220423
  Serious: Yes (Other)
  Sender: FDA-Public Use
  Company Number: US-ALLERGAN-2004857US

PATIENT
  Sex: Female

DRUGS (4)
  1. ARMOUR THYROID [Suspect]
     Active Substance: THYROID, PORCINE
     Indication: Hypothyroidism
     Dosage: 60 MG, QD
     Route: 048
  2. ELIQUIS [Concomitant]
     Active Substance: APIXABAN
     Indication: Atrial fibrillation
     Dosage: 5 MG, BID
     Route: 048
  3. BIOTIN [Concomitant]
     Active Substance: BIOTIN
     Indication: Alopecia
     Dosage: 10,000 MCG 1 TIME DAILY
     Route: 048
  4. SYNTHROID [Concomitant]
     Active Substance: LEVOTHYROXINE SODIUM
     Indication: Hormone replacement therapy
     Dosage: UNK
     Route: 048
     Dates: start: 2007, end: 2008

REACTIONS (11)
  - Lung neoplasm malignant [Recovered/Resolved]
  - Intracranial aneurysm [Unknown]
  - Throat tightness [Not Recovered/Not Resolved]
  - Dysphagia [Not Recovered/Not Resolved]
  - Pruritus [Not Recovered/Not Resolved]
  - Dyspnoea [Recovered/Resolved]
  - Decreased appetite [Not Recovered/Not Resolved]
  - Pain [Not Recovered/Not Resolved]
  - Product dispensing error [Unknown]
  - Drug hypersensitivity [Not Recovered/Not Resolved]
  - Therapeutic product effect variable [Unknown]

NARRATIVE: CASE EVENT DATE: 20150101
